FAERS Safety Report 6200543-4 (Version None)
Quarter: 2009Q2

REPORT INFORMATION
  Report Type: 
  Country: None (occurrence: None)
  Receive Date: 20090522
  Receipt Date: 20090514
  Transmission Date: 20091009
  Serious: Yes (Hospitalization)
  Sender: FDA-Public Use
  Company Number: US-AMGEN-QUU308200

PATIENT
  Sex: Female

DRUGS (14)
  1. ENBREL [Suspect]
     Indication: RHEUMATOID ARTHRITIS
     Route: 058
     Dates: start: 20040915
  2. METHOTREXATE [Concomitant]
     Route: 048
     Dates: start: 19960101
  3. FOLIC ACID [Concomitant]
     Dates: start: 19960101
  4. PREDNISONE [Concomitant]
     Dates: start: 19960101
  5. LEUCOVORIN CALCIUM [Concomitant]
     Dates: start: 19960101
  6. AMBIEN [Concomitant]
     Dates: start: 20010612
  7. MORPHINE [Concomitant]
     Dates: start: 20021001
  8. ZOLOFT [Concomitant]
     Dates: start: 20070524
  9. HYDROCHLOROTHIAZIDE [Concomitant]
     Dates: start: 20070524
  10. ZOLEDRONIC ACID [Concomitant]
     Dates: start: 20080710
  11. CALCIUM WITH VITAMIN D [Concomitant]
     Dates: start: 20021001
  12. PRILOSEC [Concomitant]
     Dates: start: 20021001
  13. UNSPECIFIED STEROIDS [Concomitant]
  14. NSAID [Concomitant]

REACTIONS (14)
  - ABDOMINAL DISCOMFORT [None]
  - ALOPECIA [None]
  - FOOT DEFORMITY [None]
  - GASTROOESOPHAGEAL REFLUX DISEASE [None]
  - INJECTION SITE ERYTHEMA [None]
  - INJECTION SITE PRURITUS [None]
  - INJECTION SITE REACTION [None]
  - INJECTION SITE WARMTH [None]
  - PRURITUS [None]
  - RHEUMATOID ARTHRITIS [None]
  - SINUSITIS [None]
  - STRESS [None]
  - TOOTH REPAIR [None]
  - URTICARIA [None]
